FAERS Safety Report 7299604-0 (Version None)
Quarter: 2011Q1

REPORT INFORMATION
  Report Type: 
  Country: None (occurrence: None)
  Receive Date: 20110209
  Receipt Date: 20110125
  Transmission Date: 20110831
  Serious: Yes (Hospitalization)
  Sender: FDA-Public Use
  Company Number: 2011000477

PATIENT
  Age: 72 Year
  Sex: Female
  Weight: 60 kg

DRUGS (6)
  1. FAMOTIDINE [Concomitant]
  2. ERLOTINIB (ERLOTINIB) (TABLET) (ERLOTINIB) [Suspect]
     Indication: LUNG ADENOCARCINOMA
     Dosage: 150 MG, QD, ORAL
     Route: 048
     Dates: start: 20081213, end: 20090216
  3. SELBEX (TEPRENONE SODIUM) [Concomitant]
  4. LOXONIN (LOXOPROFEN SODIUM) [Concomitant]
  5. PLAVIX [Concomitant]
  6. PRIMPERAN TAB [Concomitant]

REACTIONS (3)
  - CYSTITIS HAEMORRHAGIC [None]
  - KERATITIS [None]
  - ACNE [None]
